FAERS Safety Report 5562772-2 (Version None)
Quarter: 2007Q4

REPORT INFORMATION
  Report Type: 
  Country: None (occurrence: None)
  Receive Date: 20071217
  Receipt Date: 20071205
  Transmission Date: 20080405
  Serious: Yes (Hospitalization, Other)
  Sender: FDA-Public Use
  Company Number: AU-AMGEN-QUU253845

PATIENT
  Sex: Male
  Weight: 55 kg

DRUGS (1)
  1. ARANESP [Suspect]
     Indication: DRUG USE FOR UNKNOWN INDICATION
     Route: 058
     Dates: start: 20060101, end: 20070901

REACTIONS (4)
  - CALCIPHYLAXIS [None]
  - FINGER AMPUTATION [None]
  - HAEMOGLOBIN INCREASED [None]
  - ISCHAEMIA [None]
